FAERS Safety Report 18379313 (Version 2)
Quarter: 2020Q4

REPORT INFORMATION
  Report Type: Spontaneous
  Country: DE (occurrence: DE)
  Receive Date: 20201013
  Receipt Date: 20201015
  Transmission Date: 20210114
  Serious: Yes (Other)
  Sender: FDA-Public Use
  Company Number: DE-ASTRAZENECA-2020SF31272

PATIENT
  Sex: Female

DRUGS (8)
  1. CORTISONE [Concomitant]
     Active Substance: CORTISONE
  2. PREDNISOLONE. [Concomitant]
     Active Substance: PREDNISOLONE
  3. DAXAS [Suspect]
     Active Substance: ROFLUMILAST
     Route: 048
  4. BERODUAL [Concomitant]
     Active Substance: FENOTEROL HYDROBROMIDE\IPRATROPIUM BROMIDE
  5. SALBUTAMOL [Concomitant]
     Active Substance: ALBUTEROL
  6. SYMBICORT [Suspect]
     Active Substance: BUDESONIDE\FORMOTEROL FUMARATE DIHYDRATE
     Indication: ASTHMA
     Route: 055
  7. THEOPHYLLINE [Concomitant]
     Active Substance: THEOPHYLLINE ANHYDROUS
  8. BUDENOBRONCH [Concomitant]

REACTIONS (2)
  - Restless legs syndrome [Unknown]
  - Diabetes mellitus [Unknown]
